FAERS Safety Report 7310305-2 (Version None)
Quarter: 2011Q1

REPORT INFORMATION
  Report Type: 
  Country: None (occurrence: None)
  Receive Date: 20110224
  Receipt Date: 20110128
  Transmission Date: 20110831
  Serious: No
  Sender: FDA-Public Use
  Company Number: US-B.I. PHARMACEUTICALS,INC./RIDGEFIELD-2010-BP-15088BP

PATIENT
  Age: 84 Year
  Sex: Female
  Weight: 91.63 kg

DRUGS (8)
  1. PREVACID [Concomitant]
  2. VALTURNA [Concomitant]
  3. GLUCOPHAGE [Concomitant]
  4. DIGOXIN [Concomitant]
  5. ZOCOR [Concomitant]
  6. ASA [Concomitant]
     Dosage: 81 MG
  7. PRADAXA [Suspect]
     Dates: end: 20101206
  8. TOPROL-XL [Concomitant]

REACTIONS (4)
  - EPISTAXIS [None]
  - GASTROINTESTINAL HAEMORRHAGE [None]
  - PALPITATIONS [None]
  - RECTAL HAEMORRHAGE [None]
